FAERS Safety Report 8219775-9 (Version None)
Quarter: 2012Q1

REPORT INFORMATION
  Report Type: 
  Country: None (occurrence: None)
  Receive Date: 20120319
  Receipt Date: 20120314
  Transmission Date: 20120608
  Serious: No
  Sender: FDA-Public Use
  Company Number: US-PFIZER INC-2012067705

PATIENT
  Sex: Female
  Weight: 45.805 kg

DRUGS (3)
  1. LYRICA [Suspect]
     Indication: FIBROMYALGIA
     Dosage: 75 MG, 2X/DAY
     Route: 048
     Dates: start: 20100101, end: 20120101
  2. ATIVAN [Concomitant]
     Indication: SLEEP DISORDER
     Dosage: UNK
  3. LYRICA [Suspect]
     Indication: PAIN

REACTIONS (8)
  - PAIN IN EXTREMITY [None]
  - NECK PAIN [None]
  - ABDOMINAL PAIN UPPER [None]
  - BACK PAIN [None]
  - MOVEMENT DISORDER [None]
  - PAIN [None]
  - WEIGHT DECREASED [None]
  - BREAST PAIN [None]
